FAERS Safety Report 8054481-5 (Version None)
Quarter: 2012Q1

REPORT INFORMATION
  Report Type: 
  Country: None (occurrence: None)
  Receive Date: 20120118
  Receipt Date: 20120110
  Transmission Date: 20120608
  Serious: Yes (Death, Hospitalization, Disabling, Other)
  Sender: FDA-Public Use
  Company Number: US-MERCK-1105USA01973

PATIENT
  Age: 70 Year
  Sex: Male

DRUGS (3)
  1. FOSAMAX [Suspect]
     Indication: OSTEOPOROSIS
     Route: 048
     Dates: start: 20010101, end: 20080101
  2. FOSAMAX [Suspect]
     Indication: OSTEOPENIA
     Route: 048
     Dates: start: 20010101, end: 20080101
  3. CORTICOSTEROIDS (UNSPECIFIED) [Concomitant]
     Route: 065
     Dates: start: 20000101, end: 20110707

REACTIONS (52)
  - PNEUMONIA ASPIRATION [None]
  - LUNG DISORDER [None]
  - HIP FRACTURE [None]
  - CEREBRAL ATROPHY [None]
  - ASBESTOSIS [None]
  - MELAENA [None]
  - HYPONATRAEMIA [None]
  - SPINAL DISORDER [None]
  - BURSITIS [None]
  - BENIGN PROSTATIC HYPERPLASIA [None]
  - BONE MARROW DISORDER [None]
  - CEREBROVASCULAR ACCIDENT [None]
  - MICROANGIOPATHY [None]
  - ELECTROLYTE IMBALANCE [None]
  - PULMONARY EMBOLISM [None]
  - MENISCUS LESION [None]
  - VASCULAR CALCIFICATION [None]
  - COMPLICATED MIGRAINE [None]
  - ADVERSE EVENT [None]
  - WOUND [None]
  - FEMUR FRACTURE [None]
  - DEEP VEIN THROMBOSIS [None]
  - ENCEPHALOPATHY [None]
  - MITRAL VALVE INCOMPETENCE [None]
  - FALL [None]
  - DEATH [None]
  - ORAL DISORDER [None]
  - NEUROPATHY PERIPHERAL [None]
  - INAPPROPRIATE ANTIDIURETIC HORMONE SECRETION [None]
  - HYPERTENSION [None]
  - COMA [None]
  - BACK DISORDER [None]
  - HAEMORRHAGE [None]
  - TOOTH EXTRACTION [None]
  - RESPIRATORY DISORDER [None]
  - NERVOUS SYSTEM DISORDER [None]
  - INGROWING NAIL [None]
  - PSYCHOTIC DISORDER [None]
  - HYPOTHYROIDISM [None]
  - DENTAL CARIES [None]
  - CHRONIC OBSTRUCTIVE PULMONARY DISEASE [None]
  - BLEPHARITIS [None]
  - ANAEMIA POSTOPERATIVE [None]
  - CELLULITIS [None]
  - RENAL FAILURE ACUTE [None]
  - DELIRIUM [None]
  - ADVERSE DRUG REACTION [None]
  - OSTEOARTHRITIS [None]
  - DRY EYE [None]
  - DRUG HYPERSENSITIVITY [None]
  - DELUSIONAL DISORDER, PERSECUTORY TYPE [None]
  - CARDIAC FAILURE CONGESTIVE [None]
